FAERS Safety Report 7252311-2 (Version None)
Quarter: 2011Q1

REPORT INFORMATION
  Report Type: 
  Country: None (occurrence: None)
  Receive Date: 20110129
  Receipt Date: 20100405
  Transmission Date: 20110831
  Serious: No
  Sender: FDA-Public Use
  Company Number: US-ABBOTT-08P-163-0475215-00

PATIENT
  Sex: Male
  Weight: 90.8 kg

DRUGS (4)
  1. HUMIRA [Suspect]
     Indication: RHEUMATOID ARTHRITIS
     Route: 050
     Dates: start: 20060101, end: 20070101
  2. HUMIRA [Suspect]
     Indication: PSORIASIS
     Route: 058
     Dates: start: 20060101, end: 20090701
  3. XANAX [Concomitant]
     Indication: ANXIETY
     Route: 048
  4. ANTIINFLAMMATORY [Concomitant]
     Indication: INFLAMMATION
     Route: 048

REACTIONS (8)
  - FATIGUE [None]
  - IMPAIRED WORK ABILITY [None]
  - ASTHENIA [None]
  - MALAISE [None]
  - MUSCLE SPASMS [None]
  - NIGHT SWEATS [None]
  - ARTHRALGIA [None]
  - ROCKY MOUNTAIN SPOTTED FEVER [None]
